FAERS Safety Report 19013762 (Version 1)
Quarter: 2021Q1

REPORT INFORMATION
  Report Type: Spontaneous
  Country: CN (occurrence: CN)
  Receive Date: 20210315
  Receipt Date: 20210315
  Transmission Date: 20210420
  Serious: Yes (Other)
  Sender: FDA-Public Use
  Company Number: CN-BAXTER-2021BAX004859

PATIENT
  Age: 51 Year
  Sex: Female
  Weight: 80 kg

DRUGS (4)
  1. PHARMORUBICIN [Suspect]
     Active Substance: EPIRUBICIN
     Indication: BREAST CANCER FEMALE
     Dosage: FIRST CYCLE OF CHEMOTHERAPY; PHARMORUBICIN 150 MG + NS 100 ML
     Route: 041
     Dates: start: 20201223, end: 20201223
  2. 0.9% SODIUM CHLORIDE INJECTION [Suspect]
     Active Substance: SODIUM CHLORIDE
     Indication: MEDICATION DILUTION
     Dosage: FIRST CYCLE OF CHEMOTHERAPY; ENDOXAN 1000 MG + NS 50 ML
     Route: 042
     Dates: start: 20201223, end: 20201223
  3. ENDOXAN [Suspect]
     Active Substance: CYCLOPHOSPHAMIDE
     Indication: BREAST CANCER FEMALE
     Dosage: FIRST CYCLE OF CHEMOTHERAPY; ENDOXAN 1000 MG + NS 50 ML
     Route: 042
     Dates: start: 20201223, end: 20201223
  4. 0.9% SODIUM CHLORIDE INJECTION [Suspect]
     Active Substance: SODIUM CHLORIDE
     Dosage: FIRST CYCLE OF CHEMOTHERAPY; PHARMORUBICIN 150 MG + NS 100 ML
     Route: 041
     Dates: start: 20201223, end: 20201223

REACTIONS (2)
  - Leukopenia [Recovered/Resolved]
  - Agranulocytosis [Recovered/Resolved]

NARRATIVE: CASE EVENT DATE: 20210104
